FAERS Safety Report 9248617 (Version 4)
Quarter: 2014Q1

REPORT INFORMATION
  Report Type: Report from Study
  Country: US (occurrence: US)
  Receive Date: 20130423
  Receipt Date: 20140120
  Transmission Date: 20141002
  Serious: Yes (Hospitalization, Other)
  Sender: FDA-Public Use
  Company Number: US-SANOFI-AVENTIS-2013SA039270

PATIENT
  Age: 54 Year
  Sex: Male

DRUGS (2)
  1. AUBAGIO [Suspect]
     Indication: MULTIPLE SCLEROSIS
     Route: 048
     Dates: start: 20121224, end: 20130329
  2. AUBAGIO [Suspect]
     Indication: MULTIPLE SCLEROSIS
     Route: 048
     Dates: start: 20131223

REACTIONS (11)
  - Sepsis [Not Recovered/Not Resolved]
  - Myocardial infarction [Unknown]
  - Leg amputation [Unknown]
  - Foot operation [Unknown]
  - Stress [Not Recovered/Not Resolved]
  - Hypotension [Unknown]
  - Depression [Unknown]
  - Pain in extremity [Not Recovered/Not Resolved]
  - Peripheral coldness [Not Recovered/Not Resolved]
  - Weight decreased [Not Recovered/Not Resolved]
  - Headache [Unknown]
